FAERS Safety Report 9135383 (Version 1)
Quarter: 2013Q1

REPORT INFORMATION
  Report Type: Spontaneous
  Country: US (occurrence: US)
  Receive Date: 20130304
  Receipt Date: 20130304
  Transmission Date: 20140127
  Serious: No
  Sender: FDA-Public Use
  Company Number: US-ALLERGAN-1215288US

PATIENT
  Sex: Female

DRUGS (7)
  1. TAZORAC [Suspect]
     Indication: ACNE
     Dosage: UNK
     Route: 061
     Dates: start: 20120803, end: 201210
  2. CLINDAMYCIN [Concomitant]
     Indication: PRODUCT USED FOR UNKNOWN INDICATION
     Dosage: UNK UNK, QAM
     Dates: start: 20120803, end: 201210
  3. FLUCONAZOLE [Concomitant]
     Indication: PRODUCT USED FOR UNKNOWN INDICATION
     Dosage: 150 MG, Q WEEK
     Route: 048
     Dates: start: 201210
  4. PANPLEX 2-PHASE [Concomitant]
     Indication: PANCREATIC DISORDER
     Dosage: UNK
  5. NCR [Concomitant]
     Indication: NUTRITIONAL SUPPLEMENTATION
     Dosage: UNK
     Dates: start: 201210
  6. PROBIOTICS [Concomitant]
     Dosage: UNK
     Dates: start: 201210
  7. CANDIBACTIN [Concomitant]
     Dosage: UNK
     Dates: start: 201210

REACTIONS (6)
  - Face injury [Recovering/Resolving]
  - Sensory disturbance [Recovering/Resolving]
  - Burning sensation [Recovering/Resolving]
  - Pain [Recovering/Resolving]
  - Skin irritation [Recovering/Resolving]
  - Erythema [Recovering/Resolving]
